FAERS Safety Report 6857258-9 (Version None)
Quarter: 2010Q3

REPORT INFORMATION
  Report Type: 
  Country: None (occurrence: None)
  Receive Date: 20100719
  Receipt Date: 20100709
  Transmission Date: 20110219
  Serious: Yes (Hospitalization, Other)
  Sender: FDA-Public Use
  Company Number: US-ABBOTT-10P-163-0656724-00

PATIENT
  Sex: Female
  Weight: 61.29 kg

DRUGS (7)
  1. SYNTHROID [Suspect]
     Indication: PRODUCT USED FOR UNKNOWN INDICATION
  2. LEVOTHYROXINE SODIUM [Suspect]
     Indication: PRODUCT USED FOR UNKNOWN INDICATION
  3. CLONAZEPAM [Suspect]
     Indication: PRODUCT USED FOR UNKNOWN INDICATION
  4. GABAPENTIN [Suspect]
     Indication: PRODUCT USED FOR UNKNOWN INDICATION
  5. AMITRIPTYLINE HYDROCHLORIDE [Suspect]
     Indication: PRODUCT USED FOR UNKNOWN INDICATION
  6. VYTORIN [Concomitant]
     Indication: PRODUCT USED FOR UNKNOWN INDICATION
  7. UNKNOWN OSTEOPOROSIS MEDICATION [Concomitant]
     Indication: PRODUCT USED FOR UNKNOWN INDICATION

REACTIONS (30)
  - BACK INJURY [None]
  - CARDIAC DISORDER [None]
  - DIARRHOEA [None]
  - GASTROINTESTINAL INFECTION [None]
  - GASTROINTESTINAL PAIN [None]
  - GASTROOESOPHAGEAL REFLUX DISEASE [None]
  - HOSPITALISATION [None]
  - HYPOAESTHESIA [None]
  - HYPOGLYCAEMIA [None]
  - HYPOTENSION [None]
  - INTERVERTEBRAL DISC PROTRUSION [None]
  - IRRITABLE BOWEL SYNDROME [None]
  - JOINT INJURY [None]
  - LACTOSE INTOLERANCE [None]
  - LIGAMENT RUPTURE [None]
  - LIMB INJURY [None]
  - MENOPAUSE [None]
  - MUSCLE ATROPHY [None]
  - MUSCULAR WEAKNESS [None]
  - NEUROPATHY PERIPHERAL [None]
  - PAIN [None]
  - PAIN IN EXTREMITY [None]
  - PARAESTHESIA [None]
  - POLYNEUROPATHY [None]
  - SINUSITIS [None]
  - SPINAL OSTEOARTHRITIS [None]
  - SUPRAVENTRICULAR TACHYCARDIA [None]
  - THORACIC VERTEBRAL FRACTURE [None]
  - THROMBOSIS [None]
  - WEIGHT DECREASED [None]
